FAERS Safety Report 5695923-X (Version None)
Quarter: 2008Q2

REPORT INFORMATION
  Report Type: 
  Country: None (occurrence: None)
  Receive Date: 20080407
  Receipt Date: 20080404
  Transmission Date: 20081010
  Serious: Yes (Other)
  Sender: FDA-Public Use
  Company Number: A0719342A

PATIENT
  Age: 46 Year
  Sex: Female
  Weight: 86 kg

DRUGS (2)
  1. ALLI [Suspect]
     Dates: start: 20080103, end: 20080131
  2. BIRTH CONTROL PILLS [Concomitant]

REACTIONS (1)
  - VAGINAL HAEMORRHAGE [None]
